FAERS Safety Report 12160808 (Version 1)
Quarter: 2016Q1

REPORT INFORMATION
  Report Type: Spontaneous
  Country: US (occurrence: US)
  Receive Date: 20160308
  Receipt Date: 20160308
  Transmission Date: 20160526
  Serious: Yes (Hospitalization)
  Sender: FDA-Public Use
  Company Number: US-US WORLDMEDS, LLC-USW201511-000321

PATIENT
  Age: 72 Year
  Sex: Female
  Weight: 102.05 kg

DRUGS (10)
  1. PRAVASTATIN [Concomitant]
     Active Substance: PRAVASTATIN\PRAVASTATIN SODIUM
  2. LOSARTIN [Concomitant]
     Active Substance: LOSARTAN
  3. FLUOXETINE [Concomitant]
     Active Substance: FLUOXETINE HYDROCHLORIDE
  4. TIGAN [Concomitant]
     Active Substance: TRIMETHOBENZAMIDE HYDROCHLORIDE
  5. ENTACAPONE. [Concomitant]
     Active Substance: ENTACAPONE
  6. TRIHEXYPHENIDYL [Concomitant]
     Active Substance: TRIHEXYPHENIDYL
  7. ANASTROZOLE. [Concomitant]
     Active Substance: ANASTROZOLE
  8. APOKYN [Suspect]
     Active Substance: APOMORPHINE HYDROCHLORIDE
     Indication: PARKINSON^S DISEASE
     Route: 058
     Dates: start: 20150317
  9. CARB/LEVO [Concomitant]
     Active Substance: CARBIDOPA\LEVODOPA
  10. POXAZOSIN [Concomitant]

REACTIONS (3)
  - Staphylococcal infection [Recovered/Resolved]
  - Skin ulcer [Unknown]
  - Drug ineffective [Unknown]

NARRATIVE: CASE EVENT DATE: 201509
